FAERS Safety Report 17457907 (Version 1)
Quarter: 2020Q1

REPORT INFORMATION
  Report Type: Spontaneous
  Country: US (occurrence: US)
  Receive Date: 20200225
  Receipt Date: 20200225
  Transmission Date: 20200409
  Serious: Yes (Other)
  Sender: FDA-Public Use
  Company Number: US-PFIZER INC-2020082419

PATIENT
  Age: 46 Year
  Sex: Male

DRUGS (1)
  1. SIROLIMUS. [Suspect]
     Active Substance: SIROLIMUS
     Dosage: UNK

REACTIONS (6)
  - Blood cholesterol increased [Unknown]
  - Mucosal inflammation [Unknown]
  - Type 2 diabetes mellitus [Unknown]
  - Eating disorder [Unknown]
  - Drug intolerance [Unknown]
  - Weight decreased [Unknown]
